FAERS Safety Report 7090720-5 (Version None)
Quarter: 2010Q4

REPORT INFORMATION
  Report Type: 
  Country: None (occurrence: None)
  Receive Date: 20101109
  Receipt Date: 20101029
  Transmission Date: 20110411
  Serious: Yes (Other)
  Sender: FDA-Public Use
  Company Number: US-NOVOPROD-317351

PATIENT
  Sex: Female

DRUGS (6)
  1. NOVOLIN R RELI-ON [Suspect]
     Indication: TYPE 1 DIABETES MELLITUS
     Dosage: UNK
     Route: 058
     Dates: start: 20100901, end: 20101001
  2. NOVOLIN N [Suspect]
     Indication: TYPE 1 DIABETES MELLITUS
     Dosage: UNK
     Route: 058
     Dates: start: 20100901, end: 20101001
  3. TOPROL-XL [Concomitant]
     Indication: HYPERTENSION
  4. LASIX [Concomitant]
     Indication: HYPERTENSION
  5. COZAAR [Concomitant]
     Indication: HYPERTENSION
  6. PLAVIX [Concomitant]

REACTIONS (6)
  - BLOOD GLUCOSE DECREASED [None]
  - CONTUSION [None]
  - FALL [None]
  - FOOT FRACTURE [None]
  - HYPOGLYCAEMIC UNCONSCIOUSNESS [None]
  - PERIORBITAL HAEMATOMA [None]
